FAERS Safety Report 19355448 (Version 1)
Quarter: 2021Q2

REPORT INFORMATION
  Report Type: Spontaneous
  Country: US (occurrence: US)
  Receive Date: 20210601
  Receipt Date: 20210601
  Transmission Date: 20210717
  Serious: Yes (Hospitalization)
  Sender: FDA-Public Use
  Company Number: None

PATIENT
  Age: 73 Year
  Sex: Male

DRUGS (11)
  1. OMEPRAZOLE. [Concomitant]
     Active Substance: OMEPRAZOLE
  2. DULOXETINE. [Concomitant]
     Active Substance: DULOXETINE
  3. METOPROLOL. [Concomitant]
     Active Substance: METOPROLOL
  4. VITAMIN D [Concomitant]
     Active Substance: VITAMIN D NOS
  5. PREDNISONE. [Concomitant]
     Active Substance: PREDNISONE
  6. PRAVASTATIN. [Concomitant]
     Active Substance: PRAVASTATIN
  7. FORTEO [Suspect]
     Active Substance: TERIPARATIDE
     Indication: OSTEOPOROSIS
     Route: 058
  8. LISINOPRIL. [Concomitant]
     Active Substance: LISINOPRIL
  9. FLOMAX [Concomitant]
     Active Substance: TAMSULOSIN HYDROCHLORIDE
  10. CALCIUM [Concomitant]
     Active Substance: CALCIUM
  11. CELEBREX [Concomitant]
     Active Substance: CELECOXIB

REACTIONS (3)
  - Pancreatitis [None]
  - Therapy interrupted [None]
  - Abdominal pain upper [None]

NARRATIVE: CASE EVENT DATE: 20210501
